FAERS Safety Report 8045752-7 (Version None)
Quarter: 2012Q1

REPORT INFORMATION
  Report Type: 
  Country: None (occurrence: None)
  Receive Date: 20120113
  Receipt Date: 20120110
  Transmission Date: 20120608
  Serious: Yes (Other)
  Sender: FDA-Public Use
  Company Number: PHEH2011US07678

PATIENT
  Sex: Female

DRUGS (11)
  1. VITAMIN D [Concomitant]
     Dosage: UNK UKN, UNK
  2. RANITIDINE [Concomitant]
     Dosage: 150 MG, BID
  3. EXELON [Suspect]
     Indication: AMNESIA
     Dosage: 4.6MG/24HRS
     Route: 062
     Dates: start: 20111018, end: 20111024
  4. SIMVASTATIN [Concomitant]
     Dosage: 40 MG, ONCE A DAY
  5. MULTI-VITAMIN [Concomitant]
     Dosage: 1 DF, UNK
     Route: 048
  6. FISH OIL [Concomitant]
     Dosage: UNK UKN, UNK
  7. CALCIUM WITH VITAMIN D [Concomitant]
     Dosage: UNK UKN, UNK
  8. ASPIRIN [Concomitant]
     Dosage: 1 DF, UNK
     Route: 048
  9. VITAMIN B-12 [Concomitant]
     Dosage: UNK UKN, UNK
  10. EXELON [Suspect]
     Route: 062
  11. CELEXA [Concomitant]
     Dosage: 10 MG, ONE DAY

REACTIONS (8)
  - MEMORY IMPAIRMENT [None]
  - COGNITIVE DISORDER [None]
  - DISCOMFORT [None]
  - AGITATION [None]
  - NAUSEA [None]
  - DISORIENTATION [None]
  - FEAR [None]
  - INSOMNIA [None]
